FAERS Safety Report 4775085-3 (Version None)
Quarter: 2005Q3

REPORT INFORMATION
  Report Type: 
  Country: None (occurrence: None)
  Receive Date: 20050919
  Receipt Date: 20050912
  Transmission Date: 20060218
  Serious: Yes (Other)
  Sender: FDA-Public Use
  Company Number: PHFR2005GB03044

PATIENT
  Age: 40 Year
  Sex: Male

DRUGS (1)
  1. LAMISIL [Suspect]
     Dosage: TOPICAL
     Route: 061
     Dates: start: 20040401, end: 20040401

REACTIONS (2)
  - ERYTHEMA [None]
  - JOINT SWELLING [None]
